FAERS Safety Report 9127260 (Version 2)
Quarter: 2014Q1

REPORT INFORMATION
  Report Type: Spontaneous
  Country: US (occurrence: US)
  Receive Date: 20130125
  Receipt Date: 20140102
  Transmission Date: 20141002
  Serious: Yes (Hospitalization)
  Sender: FDA-Public Use
  Company Number: US-BAYER-2013-009483

PATIENT
  Age: 45 Year
  Sex: Female
  Weight: 92.52 kg

DRUGS (11)
  1. YASMIN [Suspect]
  2. OCELLA [Suspect]
  3. YAZ [Suspect]
  4. ZARAH [Suspect]
  5. SYEDA [Concomitant]
  6. VALIUM [Concomitant]
     Dosage: 5 MG, Q 6 HRS PRN (INTERPRETED AS EVERY 6 HOURS AS NEEDED
     Route: 048
  7. WELLBUTRIN XL [Concomitant]
     Dosage: 300 MG, DAILY
     Route: 048
  8. WELLBUTRIN [Concomitant]
  9. MORPHINE [Concomitant]
  10. TOPICAL NITRATES [Concomitant]
  11. BETA BLOCKING AGENTS [Concomitant]

REACTIONS (4)
  - Pulmonary embolism [Not Recovered/Not Resolved]
  - Pain [Not Recovered/Not Resolved]
  - Injury [Not Recovered/Not Resolved]
  - Pain [None]
